FAERS Safety Report 6265155-5 (Version None)
Quarter: 2009Q3

REPORT INFORMATION
  Report Type: 
  Country: None (occurrence: None)
  Receive Date: 20090713
  Receipt Date: 20090710
  Transmission Date: 20100115
  Serious: Yes (Death)
  Sender: FDA-Public Use
  Company Number: US-ASTRAZENECA-2009UW19258

PATIENT
  Sex: Male

DRUGS (5)
  1. SYMBICORT [Suspect]
     Route: 055
  2. AMBIEN [Concomitant]
  3. ALBUTEROL [Concomitant]
  4. ATENOLOL [Concomitant]
  5. DIOVAN [Concomitant]

REACTIONS (1)
  - HYPERTENSION [None]
